FAERS Safety Report 10584259 (Version 1)
Quarter: 2014Q4

REPORT INFORMATION
  Report Type: Spontaneous
  Country: US (occurrence: None)
  Receive Date: 20141113
  Receipt Date: 20141113
  Transmission Date: 20150529
  Serious: Yes (Disabling)
  Sender: FDA-Public Use
  Company Number: None

PATIENT
  Age: 37 Year
  Sex: Male
  Weight: 74.84 kg

DRUGS (2)
  1. FINASTERIDE. [Suspect]
     Active Substance: FINASTERIDE
     Indication: ALOPECIA
     Dosage: 1/4 PILL
     Route: 048
     Dates: start: 20140331, end: 20140423
  2. FINASTERIDE. [Suspect]
     Active Substance: FINASTERIDE
     Dosage: 1/4 PILL
     Route: 048
     Dates: start: 20140331, end: 20140423

REACTIONS (3)
  - Genital hypoaesthesia [None]
  - Adverse event [None]
  - Secondary hypogonadism [None]

NARRATIVE: CASE EVENT DATE: 20140423
